FAERS Safety Report 13708159 (Version 1)
Quarter: 2017Q2

REPORT INFORMATION
  Report Type: Spontaneous
  Country: US (occurrence: US)
  Receive Date: 20170630
  Receipt Date: 20170630
  Transmission Date: 20170830
  Serious: No
  Sender: FDA-Public Use
  Company Number: US-ALEXION PHARMACEUTICALS INC.-A201706524

PATIENT
  Age: 54 Year
  Sex: Female

DRUGS (1)
  1. STRENSIQ [Suspect]
     Active Substance: ASFOTASE ALFA
     Indication: HYPOPHOSPHATASIA
     Dosage: UNK
     Route: 065

REACTIONS (5)
  - Chest discomfort [Unknown]
  - Headache [Unknown]
  - Nausea [Unknown]
  - Palpitations [Unknown]
  - Retching [Unknown]

NARRATIVE: CASE EVENT DATE: 200811
